FAERS Safety Report 15790269 (Version 2)
Quarter: 2019Q1

REPORT INFORMATION
  Report Type: Spontaneous
  Country: ZA (occurrence: ZA)
  Receive Date: 20190104
  Receipt Date: 20190117
  Transmission Date: 20190417
  Serious: Yes (Hospitalization)
  Sender: FDA-Public Use
  Company Number: PHHY2019ZA000569

PATIENT
  Age: 80 Year
  Sex: Female

DRUGS (1)
  1. ISOSORBIDE DINITRATE SANDOZ [Suspect]
     Active Substance: ISOSORBIDE DINITRATE
     Indication: ANGINA PECTORIS
     Dosage: 5 MG, UNK
     Route: 060
     Dates: start: 201810

REACTIONS (3)
  - Pain in extremity [Not Recovered/Not Resolved]
  - Peripheral artery occlusion [Unknown]
  - Laryngitis [Unknown]
